FAERS Safety Report 5822936-7 (Version None)
Quarter: 2008Q3

REPORT INFORMATION
  Report Type: 
  Country: None (occurrence: None)
  Receive Date: 20080724
  Receipt Date: 20080724
  Transmission Date: 20090109
  Serious: Yes (Other)
  Sender: FDA-Public Use
  Company Number: None

PATIENT
  Sex: Female
  Weight: 55.3388 kg

DRUGS (1)
  1. EFUDEX [Suspect]
     Indication: PRECANCEROUS SKIN LESION
     Dosage: APPLY TO AREA TWICE A DAY
     Dates: start: 20070108, end: 20070408

REACTIONS (19)
  - ABDOMINAL DISTENSION [None]
  - AMNESIA [None]
  - BALANCE DISORDER [None]
  - CONFUSIONAL STATE [None]
  - DIARRHOEA [None]
  - DIZZINESS [None]
  - DRY EYE [None]
  - FEELING ABNORMAL [None]
  - INFLUENZA LIKE ILLNESS [None]
  - MEMORY IMPAIRMENT [None]
  - NAUSEA [None]
  - PAIN [None]
  - PAIN IN EXTREMITY [None]
  - PARAESTHESIA [None]
  - SOMNOLENCE [None]
  - TREMOR [None]
  - URINARY INCONTINENCE [None]
  - VISUAL IMPAIRMENT [None]
  - WEIGHT INCREASED [None]
